FAERS Safety Report 12356009 (Version 2)
Quarter: 2016Q2

REPORT INFORMATION
  Report Type: Spontaneous
  Country: JP (occurrence: JP)
  Receive Date: 20160511
  Receipt Date: 20160615
  Transmission Date: 20160815
  Serious: Yes (Hospitalization, Other)
  Sender: FDA-Public Use
  Company Number: JP-ASTRAZENECA-2016SE50420

PATIENT
  Age: 24619 Day
  Sex: Male
  Weight: 70 kg

DRUGS (13)
  1. MEROPENEM. [Suspect]
     Active Substance: MEROPENEM
     Route: 041
     Dates: start: 20160116, end: 20160119
  2. CLINDAMYCIN PHOSPHATE. [Suspect]
     Active Substance: CLINDAMYCIN PHOSPHATE
     Indication: ABSCESS
     Route: 041
     Dates: start: 20160120, end: 20160229
  3. BAKTAR [Suspect]
     Active Substance: SULFAMETHOXAZOLE\TRIMETHOPRIM
     Indication: ABSCESS
     Route: 048
     Dates: start: 20160201, end: 20160229
  4. CLINDAMYCIN PHOSPHATE. [Suspect]
     Active Substance: CLINDAMYCIN PHOSPHATE
     Indication: STAPHYLOCOCCUS TEST POSITIVE
     Route: 041
     Dates: start: 20160120, end: 20160229
  5. ZYVOX [Suspect]
     Active Substance: LINEZOLID
     Indication: ABSCESS
     Route: 048
     Dates: start: 20160201, end: 20160215
  6. ZYVOX [Suspect]
     Active Substance: LINEZOLID
     Indication: STAPHYLOCOCCUS TEST POSITIVE
     Route: 041
     Dates: start: 20160129, end: 20160131
  7. BAKTAR [Suspect]
     Active Substance: SULFAMETHOXAZOLE\TRIMETHOPRIM
     Indication: ABSCESS
     Route: 048
     Dates: start: 20160120, end: 20160129
  8. BAKTAR [Suspect]
     Active Substance: SULFAMETHOXAZOLE\TRIMETHOPRIM
     Indication: STAPHYLOCOCCUS TEST POSITIVE
     Route: 048
     Dates: start: 20160201, end: 20160229
  9. ZYVOX [Suspect]
     Active Substance: LINEZOLID
     Indication: ABSCESS
     Route: 048
     Dates: start: 20160120, end: 20160128
  10. ZYVOX [Suspect]
     Active Substance: LINEZOLID
     Indication: STAPHYLOCOCCUS TEST POSITIVE
     Route: 048
     Dates: start: 20160201, end: 20160215
  11. ZYVOX [Suspect]
     Active Substance: LINEZOLID
     Indication: ABSCESS
     Route: 041
     Dates: start: 20160129, end: 20160131
  12. BAKTAR [Suspect]
     Active Substance: SULFAMETHOXAZOLE\TRIMETHOPRIM
     Indication: STAPHYLOCOCCUS TEST POSITIVE
     Route: 048
     Dates: start: 20160120, end: 20160129
  13. ZYVOX [Suspect]
     Active Substance: LINEZOLID
     Indication: STAPHYLOCOCCUS TEST POSITIVE
     Route: 048
     Dates: start: 20160120, end: 20160128

REACTIONS (5)
  - Red blood cell count decreased [Recovering/Resolving]
  - Platelet count decreased [Recovering/Resolving]
  - C-reactive protein increased [Unknown]
  - Haemoglobin decreased [Unknown]
  - Encephalitis influenzal [Recovered/Resolved]

NARRATIVE: CASE EVENT DATE: 20160125
